FAERS Safety Report 7201366-X (Version None)
Quarter: 2010Q4

REPORT INFORMATION
  Report Type: 
  Country: None (occurrence: None)
  Receive Date: 20101229
  Receipt Date: 20101216
  Transmission Date: 20110411
  Serious: Yes (Other)
  Sender: FDA-Public Use
  Company Number: US-JNJFOC-20101004405

PATIENT
  Sex: Female
  Weight: 91.63 kg

DRUGS (3)
  1. REMICADE [Suspect]
     Indication: CROHN'S DISEASE
     Route: 042
  2. BENADRYL [Concomitant]
     Indication: PREMEDICATION
     Route: 048
  3. ACETAMINOPHEN [Concomitant]
     Indication: PREMEDICATION

REACTIONS (5)
  - CEREBRAL HAEMORRHAGE [None]
  - DYSPHAGIA [None]
  - HEADACHE [None]
  - INFUSION RELATED REACTION [None]
  - RESTLESS LEGS SYNDROME [None]
